FAERS Safety Report 12336849 (Version 1)
Quarter: 2016Q2

REPORT INFORMATION
  Report Type: Spontaneous
  Country: CH (occurrence: CH)
  Receive Date: 20160505
  Receipt Date: 20160505
  Transmission Date: 20160815
  Serious: Yes (Hospitalization)
  Sender: FDA-Public Use
  Company Number: CH-CONCORDIA PHARMACEUTICALS INC.-CO-PL-CH-2016-208

PATIENT
  Age: 22 Year
  Sex: Female

DRUGS (2)
  1. PLAQUENIL [Suspect]
     Active Substance: HYDROXYCHLOROQUINE SULFATE
     Indication: LYME DISEASE
     Dates: start: 201509, end: 20151010
  2. MINAC [Suspect]
     Active Substance: MINOCYCLINE HYDROCHLORIDE
     Indication: PRODUCT USED FOR UNKNOWN INDICATION
     Dates: start: 201509, end: 20151010

REACTIONS (3)
  - Aspartate aminotransferase increased [None]
  - Drug-induced liver injury [Recovering/Resolving]
  - Alanine aminotransferase increased [None]

NARRATIVE: CASE EVENT DATE: 20151017
